FAERS Safety Report 7044826-7 (Version None)
Quarter: 2010Q4

REPORT INFORMATION
  Report Type: 
  Country: None (occurrence: None)
  Receive Date: 20101014
  Receipt Date: 20101004
  Transmission Date: 20110411
  Serious: Yes (Other)
  Sender: FDA-Public Use
  Company Number: DE-JNJFOC-20100908669

PATIENT
  Age: 52 Year
  Sex: Female

DRUGS (5)
  1. CAELYX [Suspect]
     Indication: BREAST CANCER METASTATIC
     Dosage: 66 MG, CYCLE 1
     Route: 042
  2. DEXAMETHASONE [Concomitant]
     Indication: PRODUCT USED FOR UNKNOWN INDICATION
     Route: 065
  3. CLEMASTINE FUMARATE [Concomitant]
     Indication: PRODUCT USED FOR UNKNOWN INDICATION
     Route: 065
  4. RANITIC [Concomitant]
     Indication: PRODUCT USED FOR UNKNOWN INDICATION
     Route: 065
  5. GRANISETRON HCL [Concomitant]
     Indication: PRODUCT USED FOR UNKNOWN INDICATION
     Route: 065

REACTIONS (3)
  - ASCITES [None]
  - OEDEMATOUS PANCREATITIS [None]
  - PLEURAL EFFUSION [None]
